FAERS Safety Report 15980498 (Version 7)
Quarter: 2019Q4

REPORT INFORMATION
  Report Type: Spontaneous
  Country: DK (occurrence: DK)
  Receive Date: 20190219
  Receipt Date: 20191216
  Transmission Date: 20200122
  Serious: Yes (Hospitalization, Other)
  Sender: FDA-Public Use
  Company Number: DK-OTSUKA-2019_003868

PATIENT
  Age: 21 Year
  Sex: Male

DRUGS (5)
  1. ABILIFY [Suspect]
     Active Substance: ARIPIPRAZOLE
     Dosage: 45 MG, UNK
     Route: 065
     Dates: start: 2003, end: 2004
  2. ABILIFY [Suspect]
     Active Substance: ARIPIPRAZOLE
     Indication: PRODUCT USED FOR UNKNOWN INDICATION
     Dosage: UNK
     Route: 048
     Dates: start: 2001, end: 2001
  3. ABILIFY [Suspect]
     Active Substance: ARIPIPRAZOLE
     Dosage: 30 MG, UNK
     Route: 065
  4. ABILIFY [Suspect]
     Active Substance: ARIPIPRAZOLE
     Dosage: UNK
     Route: 065
     Dates: start: 2014
  5. ABILIFY [Suspect]
     Active Substance: ARIPIPRAZOLE
     Dosage: 15 MG, UNK
     Route: 065
     Dates: start: 2002

REACTIONS (24)
  - Tremor [Unknown]
  - Hypersexuality [Recovered/Resolved]
  - Overdose [Unknown]
  - Crying [Unknown]
  - Erection increased [Unknown]
  - Psychotic disorder [Unknown]
  - Self-injurious ideation [Recovered/Resolved]
  - Confusional state [Unknown]
  - Libido increased [Recovered/Resolved]
  - Violence-related symptom [Recovered/Resolved]
  - Suicide attempt [Unknown]
  - Compulsive shopping [Unknown]
  - Homicidal ideation [Unknown]
  - Gambling disorder [Unknown]
  - Suicidal ideation [Unknown]
  - Sexually inappropriate behaviour [Not Recovered/Not Resolved]
  - Hallucination, visual [Recovered/Resolved]
  - Delusion [Recovered/Resolved]
  - Disturbance in sexual arousal [Unknown]
  - Hyperprolactinaemia [Recovered/Resolved]
  - Blood prolactin increased [Not Recovered/Not Resolved]
  - Priapism [Recovered/Resolved]
  - Depressed mood [Unknown]
  - Drug ineffective [Unknown]

NARRATIVE: CASE EVENT DATE: 2001
